FAERS Safety Report 22016804 (Version 3)
Quarter: 2023Q2

REPORT INFORMATION
  Report Type: Spontaneous
  Country: US (occurrence: US)
  Receive Date: 20230221
  Receipt Date: 20230414
  Transmission Date: 20230721
  Serious: No
  Sender: FDA-Public Use
  Company Number: US-PFIZER INC-PV202300032669

PATIENT
  Age: 60 Year
  Sex: Female
  Weight: 49.887 kg

DRUGS (5)
  1. PAXLOVID [Suspect]
     Active Substance: NIRMATRELVIR\RITONAVIR
     Indication: COVID-19 treatment
     Dosage: [PF-07321332 300 MG]/[RITONAVIR 100 MG]; 2X/DAY
     Route: 048
     Dates: start: 20230203, end: 20230208
  2. CITALOPRAM [Concomitant]
     Active Substance: CITALOPRAM HYDROBROMIDE
     Indication: Depression
     Dosage: 20 MG, DAILY
     Route: 048
     Dates: start: 2015
  3. PANTOPRAZOLE [Concomitant]
     Active Substance: PANTOPRAZOLE
     Indication: Gastrooesophageal reflux disease
     Dosage: 40 MG
     Route: 048
     Dates: start: 2015
  4. PREMPRO [Concomitant]
     Active Substance: ESTROGENS, CONJUGATED\MEDROXYPROGESTERONE ACETATE
     Indication: Menopausal symptoms
     Dosage: UNK
     Route: 048
     Dates: start: 2020
  5. CELECOXIB [Concomitant]
     Active Substance: CELECOXIB
     Indication: Osteoarthritis
     Dosage: UNK
     Route: 048
     Dates: start: 2015

REACTIONS (2)
  - COVID-19 [Recovered/Resolved]
  - Disease recurrence [Recovered/Resolved]

NARRATIVE: CASE EVENT DATE: 20230214
